FAERS Safety Report 16646263 (Version 1)
Quarter: 2019Q3

REPORT INFORMATION
  Report Type: Spontaneous
  Country: FR (occurrence: FR)
  Receive Date: 20190730
  Receipt Date: 20190730
  Transmission Date: 20191004
  Serious: Yes (Death, Hospitalization, Other)
  Sender: FDA-Public Use
  Company Number: FR-AUROBINDO-AUR-APL-2019-043673

PATIENT

DRUGS (3)
  1. CISPLATINE [Suspect]
     Active Substance: CISPLATIN
     Indication: SMALL CELL LUNG CANCER
     Dosage: 144 MILLIGRAM, 3 WEEK
     Route: 042
     Dates: start: 20120627, end: 20120724
  2. ETOPOSIDE. [Suspect]
     Active Substance: ETOPOSIDE
     Indication: SMALL CELL LUNG CANCER
     Dosage: 552 MILLIGRAM, 3 WEEK
     Route: 041
     Dates: start: 20120627, end: 20121024
  3. CARBOPLATIN. [Suspect]
     Active Substance: CARBOPLATIN
     Indication: SMALL CELL LUNG CANCER
     Dosage: 805 MILLIGRAM, 3 WEEK
     Route: 041
     Dates: start: 20120820, end: 20121022

REACTIONS (1)
  - Progressive multifocal leukoencephalopathy [Fatal]

NARRATIVE: CASE EVENT DATE: 20121204
